FAERS Safety Report 16589526 (Version 2)
Quarter: 2019Q3

REPORT INFORMATION
  Report Type: Spontaneous
  Country: FR (occurrence: FR)
  Receive Date: 20190718
  Receipt Date: 20190729
  Transmission Date: 20191004
  Serious: Yes (Other)
  Sender: FDA-Public Use
  Company Number: FR-TAKEDA-2019TEU008158

PATIENT
  Age: 41 Year
  Sex: Male
  Weight: 59 kg

DRUGS (13)
  1. CARDENSIEL [Concomitant]
     Active Substance: BISOPROLOL FUMARATE
     Dosage: 10 MILLIGRAM, QD
     Route: 048
     Dates: start: 201810
  2. LASILIX FAIBLE [Suspect]
     Active Substance: FUROSEMIDE
     Indication: OEDEMA PERIPHERAL
     Dosage: 20 MILLIGRAM, QD
     Route: 048
     Dates: start: 20190511, end: 20190514
  3. POLARAMINE [Concomitant]
     Active Substance: DEXCHLORPHENIRAMINE MALEATE
     Indication: PROPHYLAXIS
     Dosage: 5 MILLIGRAM, QD
     Route: 065
     Dates: start: 20190124, end: 20190515
  4. ANCOTIL [Suspect]
     Active Substance: FLUCYTOSINE
     Indication: ENDOCARDITIS
     Dosage: 10 GRAM, QD
     Route: 042
     Dates: start: 20190124, end: 20190515
  5. IMOVANE [Concomitant]
     Active Substance: ZOPICLONE
     Dosage: 7.5 MILLIGRAM, QD
     Route: 048
  6. COUMADINE [Concomitant]
     Active Substance: WARFARIN SODIUM
     Dosage: 1 MILLIGRAM, QD
     Route: 048
  7. SPECIAFOLDINE [Concomitant]
     Active Substance: FOLIC ACID
     Dosage: 15 MILLIGRAM, QD
     Route: 048
  8. SUBUTEX [Concomitant]
     Active Substance: BUPRENORPHINE HYDROCHLORIDE
     Dosage: 18 MILLIGRAM, QD
     Route: 048
  9. TERCIAN                            /00759302/ [Concomitant]
     Active Substance: CYAMEMAZINE
     Dosage: 75 MILLIGRAM, QD
     Route: 048
  10. LANZOR [Suspect]
     Active Substance: LANSOPRAZOLE
     Indication: PRODUCT USED FOR UNKNOWN INDICATION
     Dosage: 15 MILLIGRAM, QD
     Route: 048
     Dates: start: 201810, end: 20190517
  11. TRIATEC                            /00885601/ [Suspect]
     Active Substance: RAMIPRIL
     Indication: CARDIAC FAILURE
     Dosage: 2.5 MILLIGRAM, QD
     Route: 048
     Dates: start: 201810, end: 20190515
  12. NICOTINELL [Concomitant]
     Active Substance: NICOTINE
     Dosage: 21 MILLIGRAM, QD
     Route: 062
     Dates: start: 201810
  13. AMBISOME [Suspect]
     Active Substance: AMPHOTERICIN B
     Indication: ENDOCARDITIS
     Dosage: 200 MILLIGRAM, QD
     Route: 042
     Dates: start: 20190124, end: 20190515

REACTIONS (1)
  - Renal failure [Recovering/Resolving]

NARRATIVE: CASE EVENT DATE: 20190514
